FAERS Safety Report 12433436 (Version 1)
Quarter: 2016Q2

REPORT INFORMATION
  Report Type: Report from Study
  Country: PA (occurrence: PA)
  Receive Date: 20160603
  Receipt Date: 20160603
  Transmission Date: 20160815
  Serious: Yes (Other)
  Sender: FDA-Public Use
  Company Number: PHHY2016PA000816

PATIENT
  Age: 62 Year
  Sex: Male
  Weight: 192 kg

DRUGS (2)
  1. TASIGNA [Suspect]
     Active Substance: NILOTINIB
     Indication: CHRONIC MYELOID LEUKAEMIA
     Dosage: 2 DF, Q12H (AT 9 IN THE MORNING AND AT 9 AT NIGHT)
     Route: 065
  2. CARVEDILOL. [Concomitant]
     Active Substance: CARVEDILOL
     Indication: CARDIAC DISORDER
     Dosage: 1 DF, UNK
     Route: 065

REACTIONS (18)
  - Diabetes mellitus [Unknown]
  - Eye haemorrhage [Unknown]
  - Intraocular pressure increased [Recovering/Resolving]
  - Vision blurred [Unknown]
  - Blood cholesterol increased [Unknown]
  - Muscle spasms [Unknown]
  - Blood glucose decreased [Unknown]
  - Nausea [Unknown]
  - Thrombosis [Recovering/Resolving]
  - Bone pain [Unknown]
  - Headache [Unknown]
  - Eye pruritus [Recovered/Resolved]
  - Visual acuity reduced [Unknown]
  - Visual impairment [Unknown]
  - Eye pain [Unknown]
  - Eye infection [Unknown]
  - Pain [Unknown]
  - Decreased appetite [Unknown]
